FAERS Safety Report 14509214 (Version 1)
Quarter: 2018Q1

REPORT INFORMATION
  Report Type: Spontaneous
  Country: US (occurrence: US)
  Receive Date: 20180209
  Receipt Date: 20180209
  Transmission Date: 20180509
  Serious: Yes (Life-Threatening, Disabling, Other)
  Sender: FDA-Public Use
  Company Number: US-TEVA-2018-US-856164

PATIENT
  Sex: Male

DRUGS (1)
  1. AMIODARONE [Suspect]
     Active Substance: AMIODARONE
     Indication: ATRIAL FIBRILLATION

REACTIONS (13)
  - Optic ischaemic neuropathy [Unknown]
  - Cataract [Unknown]
  - Fatigue [Unknown]
  - Coordination abnormal [Unknown]
  - Keratopathy [Unknown]
  - Adverse event [Unknown]
  - Vision blurred [Unknown]
  - Blindness [Unknown]
  - Anxiety [Unknown]
  - Off label use [Unknown]
  - Vitreous floaters [Unknown]
  - Visual acuity reduced [Unknown]
  - Toxicity to various agents [Unknown]

NARRATIVE: CASE EVENT DATE: 2015
